FAERS Safety Report 8540822-9 (Version None)
Quarter: 2012Q3

REPORT INFORMATION
  Report Type: 
  Country: None (occurrence: None)
  Receive Date: 20120726
  Receipt Date: 20120718
  Transmission Date: 20120928
  Serious: Yes (Hospitalization, Other)
  Sender: FDA-Public Use
  Company Number: US-ASTRAZENECA-2012SE50753

PATIENT
  Age: 47 Year
  Sex: Female

DRUGS (1)
  1. NEXIUM [Suspect]
     Route: 048

REACTIONS (5)
  - AORTIC OCCLUSION [None]
  - DISEASE RECURRENCE [None]
  - OFF LABEL USE [None]
  - POOR PERIPHERAL CIRCULATION [None]
  - ANGIOPATHY [None]
